FAERS Safety Report 22240631 (Version 1)
Quarter: 2023Q2

REPORT INFORMATION
  Report Type: Spontaneous
  Country: US (occurrence: US)
  Receive Date: 20230421
  Receipt Date: 20230421
  Transmission Date: 20230722
  Serious: Yes (Other)
  Sender: FDA-Public Use
  Company Number: US-TEVA-2023-US-2877771

PATIENT
  Age: 65 Year
  Sex: Female

DRUGS (2)
  1. BUPRENORPHINE [Suspect]
     Active Substance: BUPRENORPHINE
     Indication: Pain
     Dosage: STRENGTH: 7.5 MCG / HR
     Route: 062
     Dates: start: 202303
  2. OXYCODONE [Suspect]
     Active Substance: OXYCODONE
     Indication: Pain
     Route: 065
     Dates: start: 2001

REACTIONS (12)
  - Femur fracture [Unknown]
  - Hip fracture [Unknown]
  - Withdrawal syndrome [Unknown]
  - Malaise [Unknown]
  - Restless legs syndrome [Unknown]
  - Sitting disability [Unknown]
  - Myalgia [Unknown]
  - Agitation [Unknown]
  - Abnormal behaviour [Unknown]
  - Application site photosensitivity reaction [Unknown]
  - Drug ineffective [Unknown]
  - Feeling hot [Unknown]

NARRATIVE: CASE EVENT DATE: 20230101
